FAERS Safety Report 4970697-6 (Version None)
Quarter: 2006Q2

REPORT INFORMATION
  Report Type: 
  Country: None (occurrence: None)
  Receive Date: 20060411
  Receipt Date: 20060411
  Transmission Date: 20061013
  Serious: Yes (Hospitalization)
  Sender: FDA-Public Use
  Company Number: None

PATIENT
  Age: 60 Year
  Sex: Female
  Weight: 88.5 kg

DRUGS (1)
  1. TAXOTERE [Suspect]

REACTIONS (2)
  - NAUSEA [None]
  - VOMITING [None]
